FAERS Safety Report 5782147-0 (Version None)
Quarter: 2008Q2

REPORT INFORMATION
  Report Type: 
  Country: None (occurrence: None)
  Receive Date: 20080623
  Receipt Date: 20080617
  Transmission Date: 20081010
  Serious: Yes (Other)
  Sender: FDA-Public Use
  Company Number: US-BAXTER-2008BH002258

PATIENT

DRUGS (1)
  1. HEPARIN SODIUM INJECTION [Suspect]
     Indication: VASCULAR GRAFT
     Dosage: DOSE UNIT:UNKNOWN
     Route: 065

REACTIONS (1)
  - HYPOTENSION [None]
